FAERS Safety Report 14441418 (Version 1)
Quarter: 2018Q1

REPORT INFORMATION
  Report Type: Spontaneous
  Country: US (occurrence: US)
  Receive Date: 20180125
  Receipt Date: 20180125
  Transmission Date: 20180509
  Serious: Yes (Other)
  Sender: FDA-Public Use
  Company Number: US-SA-2017SA174374

PATIENT
  Age: 61 Year
  Sex: Female

DRUGS (7)
  1. HUMALOG [Concomitant]
     Active Substance: INSULIN LISPRO
  2. LEVEMIR [Concomitant]
     Active Substance: INSULIN DETEMIR
  3. NOVOLOG [Concomitant]
     Active Substance: INSULIN ASPART
  4. SOLOSTAR [Suspect]
     Active Substance: DEVICE
     Indication: DIABETES MELLITUS INADEQUATE CONTROL
     Dates: start: 2009, end: 20170929
  5. LANTUS SOLOSTAR [Suspect]
     Active Substance: INSULIN GLARGINE
     Indication: DIABETES MELLITUS INADEQUATE CONTROL
     Dosage: 80 UNITS AT NIGHT, 12 UNITS IN THE AM EQUALS 92 UNITS/DAY
     Route: 051
     Dates: start: 2009, end: 20170929
  6. SOLOSTAR [Suspect]
     Active Substance: DEVICE
     Indication: DIABETES MELLITUS INADEQUATE CONTROL
     Dates: start: 2009, end: 20170929
  7. LANTUS SOLOSTAR [Suspect]
     Active Substance: INSULIN GLARGINE
     Indication: DIABETES MELLITUS INADEQUATE CONTROL
     Dosage: 80 UNITS AT NIGHT, 12 UNITS IN THE AM EQUALS 92 UNITS/DAY
     Route: 051
     Dates: start: 2009, end: 20170929

REACTIONS (9)
  - Cataract [Unknown]
  - Product storage error [Unknown]
  - Condition aggravated [Unknown]
  - Blood glucose decreased [Unknown]
  - Product use issue [Unknown]
  - Thinking abnormal [Recovered/Resolved]
  - Feeling abnormal [Recovered/Resolved]
  - Visual impairment [Unknown]
  - Transient ischaemic attack [Recovered/Resolved]

NARRATIVE: CASE EVENT DATE: 2009
